FAERS Safety Report 22390772 (Version 4)
Quarter: 2023Q4

REPORT INFORMATION
  Report Type: Spontaneous
  Country: JP (occurrence: JP)
  Receive Date: 20230531
  Receipt Date: 20231211
  Transmission Date: 20240110
  Serious: Yes (Death, Hospitalization, Other)
  Sender: FDA-Public Use
  Company Number: JP-ONO-2023JP013851

PATIENT
  Age: 60 Year
  Sex: Male

DRUGS (9)
  1. OPDIVO [Suspect]
     Active Substance: NIVOLUMAB
     Indication: Gastric cancer
     Dosage: UNK
     Route: 041
  2. OPDIVO [Suspect]
     Active Substance: NIVOLUMAB
     Dosage: UNK
     Route: 041
  3. COVID-19 VACCINE NOS [Suspect]
     Active Substance: COVID-19 VACCINE NOS
     Indication: Product used for unknown indication
     Dates: start: 2023, end: 2023
  4. GIMERACIL\OTERACIL\TEGAFUR [Concomitant]
     Active Substance: GIMERACIL\OTERACIL POTASSIUM\TEGAFUR
     Indication: Gastric cancer
     Dosage: UNK
  5. OXALIPLATIN [Concomitant]
     Active Substance: OXALIPLATIN
     Indication: Gastric cancer
     Dosage: UNK
  6. OXALIPLATIN [Concomitant]
     Active Substance: OXALIPLATIN
     Dosage: UNK
  7. CAPECITABINE [Concomitant]
     Active Substance: CAPECITABINE
     Indication: Gastric cancer
     Dosage: UNK
  8. RAMUCIRUMAB [Concomitant]
     Active Substance: RAMUCIRUMAB
     Indication: Gastric cancer
     Dosage: UNK
  9. PACLITAXEL [Concomitant]
     Active Substance: PACLITAXEL
     Indication: Gastric cancer
     Dosage: UNK

REACTIONS (3)
  - Fulminant type 1 diabetes mellitus [Fatal]
  - Hypopituitarism [Unknown]
  - Secondary adrenocortical insufficiency [Unknown]

NARRATIVE: CASE EVENT DATE: 20230101
